FAERS Safety Report 4451696-X (Version None)
Quarter: 2004Q3

REPORT INFORMATION
  Report Type: 
  Country: None (occurrence: None)
  Receive Date: 20040915
  Receipt Date: 20040907
  Transmission Date: 20050211
  Serious: Yes (Hospitalization, Other)
  Sender: FDA-Public Use
  Company Number: 2004-01-0239

PATIENT
  Age: 45 Year
  Sex: Male
  Weight: 62 kg

DRUGS (6)
  1. DIPROSONE [Suspect]
     Indication: PSORIASIS
     Dosage: 0.05% 30MG QD TOP-DERM
     Route: 061
     Dates: start: 19940101
  2. DIPROSONE [Suspect]
     Indication: PSORIASIS
     Dosage: 0.05% 30MG QD TOP-DERM
     Route: 061
     Dates: start: 19940101
  3. BETAMETHASONE DIPROPIONATE [Suspect]
     Indication: DERMATOSIS
     Dosage: TOP-DERM
     Route: 061
  4. CYCLOSPORINE [Suspect]
     Dosage: SEE IMAGE
     Route: 048
     Dates: start: 19940701, end: 19971001
  5. CYCLOSPORINE [Suspect]
     Dosage: SEE IMAGE
     Route: 048
     Dates: start: 19980501
  6. SALICYLIC ACID [Concomitant]

REACTIONS (8)
  - ASEPTIC NECROSIS BONE [None]
  - BLOOD CORTISOL DECREASED [None]
  - DERMATITIS EXFOLIATIVE [None]
  - DRUG INEFFECTIVE [None]
  - OSTEONECROSIS [None]
  - PSORIASIS [None]
  - RASH PUSTULAR [None]
  - SKIN ATROPHY [None]
